FAERS Safety Report 13591667 (Version 2)
Quarter: 2017Q2

REPORT INFORMATION
  Report Type: Spontaneous
  Country: US (occurrence: US)
  Receive Date: 20170529
  Receipt Date: 20170602
  Transmission Date: 20170830
  Serious: No
  Sender: FDA-Public Use
  Company Number: US-PFIZER INC-2017211472

PATIENT

DRUGS (2)
  1. SODIUM CHLORIDE. [Suspect]
     Active Substance: SODIUM CHLORIDE
     Indication: VITAMIN SUPPLEMENTATION
     Dosage: 1000 ML SOLUTION BAG
     Route: 042
  2. SODIUM CHLORIDE. [Suspect]
     Active Substance: SODIUM CHLORIDE
     Dosage: 500 ML SOLUTION BAG
     Route: 042

REACTIONS (3)
  - Immune system disorder [Unknown]
  - Swelling face [Unknown]
  - Blister [Unknown]
